FAERS Safety Report 7369243-1 (Version None)
Quarter: 2011Q1

REPORT INFORMATION
  Report Type: 
  Country: None (occurrence: None)
  Receive Date: 20110314
  Receipt Date: 20110303
  Transmission Date: 20110831
  Serious: Yes (Death, Hospitalization, Other)
  Sender: FDA-Public Use
  Company Number: 2011030045

PATIENT
  Age: 55 Year
  Sex: Male

DRUGS (9)
  1. DECADRON [Concomitant]
  2. LOVENOX [Concomitant]
  3. DURAGESIC-100 [Concomitant]
  4. MAALOX (SIMETHICONE) [Concomitant]
  5. FOLIC ACID [Concomitant]
  6. ATIVAN [Concomitant]
  7. CHLOPROMAZINE [Concomitant]
  8. ONSOLIS [Suspect]
     Indication: PRODUCT USED FOR UNKNOWN INDICATION
  9. TUMS (CALCIUM CARBONATE) [Concomitant]

REACTIONS (2)
  - HAEMORRHAGE [None]
  - DEEP VEIN THROMBOSIS [None]
